FAERS Safety Report 10715752 (Version 3)
Quarter: 2015Q1

REPORT INFORMATION
  Report Type: Report from Study
  Country: FR (occurrence: FR)
  Receive Date: 20150116
  Receipt Date: 20150312
  Transmission Date: 20150721
  Serious: Yes (Hospitalization)
  Sender: FDA-Public Use
  Company Number: PHHO2015FR000902

PATIENT
  Age: 50 Year
  Sex: Male

DRUGS (2)
  1. SOM230 [Suspect]
     Active Substance: PASIREOTIDE
     Dosage: 60 MG
     Route: 030
     Dates: start: 20150218
  2. SOM230 [Suspect]
     Active Substance: PASIREOTIDE
     Indication: ACROMEGALY
     Dosage: 60 MG
     Route: 030
     Dates: start: 20120119

REACTIONS (1)
  - Cholecystitis [Recovered/Resolved with Sequelae]

NARRATIVE: CASE EVENT DATE: 20150110
